FAERS Safety Report 26113694 (Version 1)
Quarter: 2025Q4

REPORT INFORMATION
  Report Type: Spontaneous
  Country: US (occurrence: US)
  Receive Date: 20251202
  Receipt Date: 20251202
  Transmission Date: 20260118
  Serious: Yes (Other)
  Sender: AMGEN
  Company Number: US-AMGEN-USASP2025234890

PATIENT
  Age: 27 Year
  Sex: Female

DRUGS (23)
  1. BEVACIZUMAB [Suspect]
     Active Substance: BEVACIZUMAB
     Indication: Ovarian germ cell teratoma stage IV
     Dosage: UNK (3 CYCLES)
     Route: 065
  2. BEVACIZUMAB [Suspect]
     Active Substance: BEVACIZUMAB
     Indication: Metastases to meninges
  3. PREDNISONE [Suspect]
     Active Substance: PREDNISONE
     Indication: Neuromyelitis optica spectrum disorder
     Dosage: UNK, (HIGH DOSE)
     Route: 065
  4. PREDNISONE [Suspect]
     Active Substance: PREDNISONE
     Indication: Vertigo
     Dosage: UNK (TAPER)
     Route: 065
  5. PREDNISONE [Suspect]
     Active Substance: PREDNISONE
     Indication: Nystagmus
     Dosage: UNK (LOW DOSE)
     Route: 065
  6. PREDNISONE [Suspect]
     Active Substance: PREDNISONE
     Dosage: UNK (TAPER)
     Route: 065
  7. BLEOMYCIN [Concomitant]
     Active Substance: BLEOMYCIN SULFATE
     Indication: Ovarian germ cell teratoma stage IV
  8. BLEOMYCIN [Concomitant]
     Active Substance: BLEOMYCIN SULFATE
     Indication: Metastases to meninges
  9. ETOPOSIDE [Concomitant]
     Active Substance: ETOPOSIDE
     Indication: Ovarian germ cell teratoma stage IV
  10. ETOPOSIDE [Concomitant]
     Active Substance: ETOPOSIDE
     Indication: Metastases to meninges
  11. CISPLATIN [Concomitant]
     Active Substance: CISPLATIN
     Indication: Ovarian germ cell teratoma stage IV
  12. CISPLATIN [Concomitant]
     Active Substance: CISPLATIN
     Indication: Metastases to meninges
  13. TIZANIDINE [Concomitant]
     Active Substance: TIZANIDINE
     Indication: Muscle spasms
  14. OXYCODONE [Concomitant]
     Active Substance: OXYCODONE
     Indication: Muscle spasms
  15. DIAZEPAM [Concomitant]
     Active Substance: DIAZEPAM
     Indication: Muscle spasms
  16. DIAZEPAM [Concomitant]
     Active Substance: DIAZEPAM
     Indication: Neuromyelitis optica spectrum disorder
  17. DULOXETINE [Concomitant]
     Active Substance: DULOXETINE
     Indication: Muscle spasms
  18. METHYLPREDNISOLONE [Concomitant]
     Active Substance: METHYLPREDNISOLONE
     Indication: Inflammation
     Dosage: UNK, (HIGH DOSE)
     Route: 040
  19. BACLOFEN [Concomitant]
     Active Substance: BACLOFEN
     Indication: Neuromyelitis optica spectrum disorder
  20. CARBAMAZEPINE [Concomitant]
     Active Substance: CARBAMAZEPINE
     Indication: Neuromyelitis optica spectrum disorder
     Dosage: 100 MILLIGRAM
  21. CARBAMAZEPINE [Concomitant]
     Active Substance: CARBAMAZEPINE
     Dosage: 200 MILLIGRAM
  22. DEXAMETHASONE [Concomitant]
     Active Substance: DEXAMETHASONE
     Indication: Vertigo
     Dosage: 4 MILLIGRAM
  23. DEXAMETHASONE [Concomitant]
     Active Substance: DEXAMETHASONE
     Indication: Nystagmus

REACTIONS (4)
  - Metastases to central nervous system [Recovering/Resolving]
  - Brain radiation necrosis [Recovering/Resolving]
  - Drug ineffective for unapproved indication [Unknown]
  - Off label use [Unknown]
